FAERS Safety Report 11211007 (Version 1)
Quarter: 2015Q2

REPORT INFORMATION
  Report Type: Spontaneous
  Country: NL (occurrence: NL)
  Receive Date: 20150623
  Receipt Date: 20150623
  Transmission Date: 20150821
  Serious: Yes (Other)
  Sender: FDA-Public Use
  Company Number: NL-AMGEN-NLDSP2015057797

PATIENT
  Age: 20 Year
  Sex: Female

DRUGS (2)
  1. PROCORALAN [Suspect]
     Active Substance: IVABRADINE
     Indication: SINUS TACHYCARDIA
     Dosage: 05 MG, BID
     Route: 048
     Dates: start: 201504
  2. PROCORALAN [Suspect]
     Active Substance: IVABRADINE
     Indication: OFF LABEL USE

REACTIONS (2)
  - Activities of daily living impaired [Recovered/Resolved]
  - Diplopia [Recovered/Resolved]

NARRATIVE: CASE EVENT DATE: 201504
